FAERS Safety Report 13582807 (Version 1)
Quarter: 2017Q2

REPORT INFORMATION
  Report Type: Spontaneous
  Country: US (occurrence: US)
  Receive Date: 20170525
  Receipt Date: 20170525
  Transmission Date: 20170830
  Serious: No
  Sender: FDA-Public Use
  Company Number: US-ALARA PHARMACEUTICAL CORPORATION-2021229

PATIENT
  Sex: Female
  Weight: 81.82 kg

DRUGS (2)
  1. LEVO-T [Suspect]
     Active Substance: LEVOTHYROXINE SODIUM
     Route: 048
  2. AN ANTI-INFLAMMATORY [Concomitant]

REACTIONS (2)
  - Product quality issue [Unknown]
  - Product solubility abnormal [Not Recovered/Not Resolved]
